FAERS Safety Report 17160841 (Version 3)
Quarter: 2020Q1

REPORT INFORMATION
  Report Type: Spontaneous
  Country: US (occurrence: US)
  Receive Date: 20191216
  Receipt Date: 20200212
  Transmission Date: 20200409
  Serious: Yes (Other)
  Sender: FDA-Public Use
  Company Number: US-BAYER-2019-226630

PATIENT
  Age: 34 Year
  Sex: Female
  Weight: 82.99 kg

DRUGS (2)
  1. MIRENA [Suspect]
     Active Substance: LEVONORGESTREL
     Indication: MENSTRUAL CYCLE MANAGEMENT
  2. MIRENA [Suspect]
     Active Substance: LEVONORGESTREL
     Indication: CONTRACEPTION
     Dosage: 20 ?G PER DAY CONTINUOUSLY
     Route: 015
     Dates: start: 20181106, end: 20200120

REACTIONS (6)
  - Vaginal haemorrhage [None]
  - Product complaint [None]
  - Hypomenorrhoea [None]
  - Menorrhagia [None]
  - Genital haemorrhage [None]
  - Coital bleeding [None]
